FAERS Safety Report 25336932 (Version 1)
Quarter: 2025Q2

REPORT INFORMATION
  Report Type: Spontaneous
  Country: US (occurrence: US)
  Receive Date: 20250520
  Receipt Date: 20250520
  Transmission Date: 20250717
  Serious: No
  Sender: AMGEN
  Company Number: US-AMGEN-USASP2025095734

PATIENT
  Age: 54 Year
  Sex: Female

DRUGS (3)
  1. AIMOVIG [Suspect]
     Active Substance: ERENUMAB-AOOE
     Indication: Migraine
     Dosage: 140 MILLIGRAM, QMO
     Route: 058
     Dates: start: 20250406
  2. AIMOVIG [Suspect]
     Active Substance: ERENUMAB-AOOE
     Dosage: 140 MILLIGRAM, QMO
     Route: 058
  3. RIZATRIPTAN [Concomitant]
     Active Substance: RIZATRIPTAN
     Indication: Migraine

REACTIONS (8)
  - Accidental exposure to product [Unknown]
  - Injection site indentation [Unknown]
  - Migraine [Not Recovered/Not Resolved]
  - Wrong technique in product usage process [Unknown]
  - Drug dose omission by device [Unknown]
  - Device difficult to use [Unknown]
  - Product communication issue [Unknown]
  - Procedural headache [Unknown]

NARRATIVE: CASE EVENT DATE: 20250101
